FAERS Safety Report 12922710 (Version 1)
Quarter: 2016Q4

REPORT INFORMATION
  Report Type: Spontaneous
  Country: US (occurrence: US)
  Receive Date: 20161108
  Receipt Date: 20161108
  Transmission Date: 20170207
  Serious: Yes (Life-Threatening)
  Sender: FDA-Public Use
  Company Number: None

PATIENT
  Age: 16 Year
  Sex: Male
  Weight: 85 kg

DRUGS (4)
  1. PEGASPARAGASE [Suspect]
     Active Substance: PEGASPARGASE
     Indication: ACUTE LYMPHOCYTIC LEUKAEMIA
     Route: 042
     Dates: start: 20161024, end: 20161024
  2. VINCRISTINE [Concomitant]
     Active Substance: VINCRISTINE
  3. ONDANSETRON [Concomitant]
     Active Substance: ONDANSETRON
  4. METHOTREXATE. [Concomitant]
     Active Substance: METHOTREXATE

REACTIONS (10)
  - Diarrhoea [None]
  - Tachycardia [None]
  - Tremor [None]
  - Hypertension [None]
  - Chills [None]
  - Pruritus [None]
  - Vomiting [None]
  - Dizziness [None]
  - Ocular hyperaemia [None]
  - Shock [None]

NARRATIVE: CASE EVENT DATE: 20161024
